FAERS Safety Report 8259135-8 (Version None)
Quarter: 2012Q2

REPORT INFORMATION
  Report Type: 
  Country: None (occurrence: None)
  Receive Date: 20120404
  Receipt Date: 20120118
  Transmission Date: 20120825
  Serious: Yes (Hospitalization)
  Sender: FDA-Public Use
  Company Number: CH-ASTRAZENECA-2012SE04203

PATIENT
  Age: 17 Year
  Sex: Male
  Weight: 80.4 kg

DRUGS (7)
  1. SEROQUEL XR [Suspect]
     Indication: SCHIZOPHRENIA, PARANOID TYPE
     Route: 048
     Dates: end: 20111002
  2. ESCITALOPRAM [Suspect]
     Route: 048
     Dates: start: 20111209
  3. SOLIAN [Suspect]
     Route: 048
     Dates: start: 20111209, end: 20111212
  4. ESCITALOPRAM [Suspect]
     Route: 048
     Dates: start: 20111129, end: 20111208
  5. SOLIAN [Suspect]
     Route: 048
     Dates: start: 20111202, end: 20111208
  6. SEROQUEL XR [Suspect]
     Route: 048
     Dates: start: 20111003, end: 20111202
  7. SOLIAN [Suspect]
     Route: 048
     Dates: start: 20111201

REACTIONS (1)
  - NAUSEA [None]
